FAERS Safety Report 11651262 (Version 1)
Quarter: 2015Q4

REPORT INFORMATION
  Report Type: Spontaneous
  Country: US (occurrence: US)
  Receive Date: 20151022
  Receipt Date: 20151022
  Transmission Date: 20160304
  Serious: Yes (Hospitalization)
  Sender: FDA-Public Use
  Company Number: US-ROCHE-ITM201504IM015036

PATIENT
  Age: 58 Year
  Sex: Female

DRUGS (1)
  1. ESBRIET [Suspect]
     Active Substance: PIRFENIDONE
     Indication: IDIOPATHIC PULMONARY FIBROSIS
     Dosage: 3 PILLS (267MG) TID
     Route: 048
     Dates: start: 20150101

REACTIONS (3)
  - Pneumonia [Unknown]
  - Pulmonary thrombosis [Unknown]
  - Viral infection [Unknown]

NARRATIVE: CASE EVENT DATE: 20150429
